FAERS Safety Report 15698834 (Version 3)
Quarter: 2019Q2

REPORT INFORMATION
  Report Type: Spontaneous
  Country: US (occurrence: US)
  Receive Date: 20181207
  Receipt Date: 20190619
  Transmission Date: 20190711
  Serious: No
  Sender: FDA-Public Use
  Company Number: US-PFIZER INC-2018428298

PATIENT
  Age: 64 Year
  Sex: Male
  Weight: 72.12 kg

DRUGS (5)
  1. ADVIL ARTHRITIS PAIN [Suspect]
     Active Substance: IBUPROFEN
     Dosage: 200 MG, UNK
     Route: 048
  2. LIPITOR [Concomitant]
     Active Substance: ATORVASTATIN CALCIUM
     Indication: BLOOD CHOLESTEROL ABNORMAL
     Dosage: 10 MG, ONCE DAILY
     Route: 048
  3. ADVIL ARTHRITIS PAIN [Suspect]
     Active Substance: IBUPROFEN
     Indication: ARTHRALGIA
     Dosage: 2-3 DF, AS NEEDED (PER DAY)
     Route: 048
     Dates: start: 201806
  4. VOLTAREN [Concomitant]
     Active Substance: DICLOFENAC SODIUM
     Indication: ARTHRALGIA
     Dosage: UNK, AS NEEDED
     Route: 061
  5. SYNTHROID [Concomitant]
     Active Substance: LEVOTHYROXINE SODIUM
     Indication: THYROID DISORDER
     Dosage: 100 UG, 1X/DAY
     Route: 048

REACTIONS (1)
  - Drug ineffective [Unknown]
